FAERS Safety Report 7814005-1 (Version None)
Quarter: 2011Q4

REPORT INFORMATION
  Report Type: 
  Country: None (occurrence: None)
  Receive Date: 20111014
  Receipt Date: 20111009
  Transmission Date: 20120403
  Serious: Yes (Hospitalization)
  Sender: FDA-Public Use
  Company Number: US-ABBOTT-11P-163-0854689-00

PATIENT
  Age: 38 Year
  Sex: Female

DRUGS (6)
  1. HUMIRA [Suspect]
     Indication: CROHN'S DISEASE
     Dosage: 160 MG DAY 1, 80 MG DAY 15
     Dates: start: 20110818
  2. CELEXA [Concomitant]
     Indication: DEPRESSION
     Dates: start: 20110901
  3. HUMIRA [Suspect]
  4. ANTIDEPRESSANTS [Concomitant]
     Indication: PRODUCT USED FOR UNKNOWN INDICATION
  5. ANTI-ANXIETY [Concomitant]
     Indication: PRODUCT USED FOR UNKNOWN INDICATION
  6. KLONOPIN [Concomitant]
     Indication: ANXIETY

REACTIONS (9)
  - PYREXIA [None]
  - JOINT SWELLING [None]
  - DIARRHOEA [None]
  - ABDOMINAL PAIN [None]
  - BREAST SWELLING [None]
  - NAUSEA [None]
  - CYSTITIS [None]
  - VOMITING [None]
  - OEDEMA PERIPHERAL [None]
